FAERS Safety Report 14633841 (Version 2)
Quarter: 2018Q2

REPORT INFORMATION
  Report Type: Spontaneous
  Country: GB (occurrence: GB)
  Receive Date: 20180314
  Receipt Date: 20180528
  Transmission Date: 20180711
  Serious: Yes (Disabling, Other)
  Sender: FDA-Public Use
  Company Number: GB-CIPLA LTD.-2018GB11195

PATIENT

DRUGS (6)
  1. NICOTINE. [Concomitant]
     Active Substance: NICOTINE
     Indication: PRODUCT USED FOR UNKNOWN INDICATION
     Dosage: 4 MG, AS NECESSARY
     Route: 065
     Dates: start: 20170911
  2. ZOPICLONE [Concomitant]
     Active Substance: ZOPICLONE
     Indication: SLEEP DISORDER
     Dosage: UNK, ONE AT NIGHT WHEN REQUIRED TO SLEEP ; AS NECESSARY
     Route: 065
     Dates: start: 20170927
  3. TOPIRAMATE. [Suspect]
     Active Substance: TOPIRAMATE
     Indication: HEADACHE
     Dosage: 50 MG,PER DAY
     Route: 065
     Dates: start: 20170927, end: 20171004
  4. BECONASE AQ [Concomitant]
     Active Substance: BECLOMETHASONE DIPROPIONATE MONOHYDRATE
     Indication: PRODUCT USED FOR UNKNOWN INDICATION
     Dosage: UNK, TWO SQUIRTS EACH NOSTRIL TWICE A DAY
     Route: 045
     Dates: start: 20170727
  5. COCODAMOL [Concomitant]
     Active Substance: ACETAMINOPHEN\CODEINE PHOSPHATE
     Indication: HEADACHE
     Dosage: 8MG/500MG, 1 OR 2 4 TIMES A DAY; AS NECESSARY
     Route: 065
     Dates: start: 20170911
  6. HYDROCORTISONE. [Concomitant]
     Active Substance: HYDROCORTISONE
     Indication: PRODUCT USED FOR UNKNOWN INDICATION
     Dosage: UNK, FOR SHINS, AS NECCESSARY
     Route: 065
     Dates: start: 20170927

REACTIONS (5)
  - Disturbance in attention [Unknown]
  - Malaise [Unknown]
  - Speech disorder [Unknown]
  - Dizziness [Recovered/Resolved]
  - Confusional state [Unknown]
